FAERS Safety Report 8928342 (Version 3)
Quarter: 2013Q1

REPORT INFORMATION
  Report Type: Spontaneous
  Country: US (occurrence: US)
  Receive Date: 20121127
  Receipt Date: 20130210
  Transmission Date: 20140127
  Serious: Yes (Other)
  Sender: FDA-Public Use
  Company Number: US-US-EMD SERONO, INC.-7178213

PATIENT
  Age: 65 None
  Sex: Female
  Weight: 67 kg

DRUGS (1)
  1. REBIF [Suspect]
     Indication: MULTIPLE SCLEROSIS
     Route: 058
     Dates: start: 20020705

REACTIONS (4)
  - Glaucoma [Not Recovered/Not Resolved]
  - Haematoma [Recovering/Resolving]
  - Fall [Unknown]
  - Vasodilatation [Not Recovered/Not Resolved]
